FAERS Safety Report 10154143 (Version 1)
Quarter: 2014Q2

REPORT INFORMATION
  Report Type: Spontaneous
  Country: IN (occurrence: None)
  Receive Date: 20140502
  Receipt Date: 20140502
  Transmission Date: 20141212
  Serious: Yes (Other)
  Sender: FDA-Public Use
  Company Number: INT_00372_2014

PATIENT
  Age: 54 Year
  Sex: Male

DRUGS (2)
  1. CISPLATIN [Suspect]
     Indication: SQUAMOUS CELL CARCINOMA OF THE TONGUE
     Dosage: (100 MG/M2 ON D1, D22, AND D43)
  2. RADIATION [Concomitant]

REACTIONS (8)
  - Peripheral artery thrombosis [None]
  - Peripheral artery thrombosis [None]
  - Coronary artery restenosis [None]
  - Coronary artery thrombosis [None]
  - Peripheral artery thrombosis [None]
  - Intermittent claudication [None]
  - Aortic arteriosclerosis [None]
  - Iliac artery occlusion [None]
